FAERS Safety Report 9894793 (Version 2)
Quarter: 2014Q3

REPORT INFORMATION
  Report Type: Spontaneous
  Country: US (occurrence: US)
  Receive Date: 20140213
  Receipt Date: 20140814
  Transmission Date: 20150326
  Serious: Yes (Hospitalization, Other)
  Sender: FDA-Public Use
  Company Number: US-009507513-1402USA006702

PATIENT
  Sex: Female
  Weight: 90.7 kg

DRUGS (2)
  1. NUVARING [Suspect]
     Active Substance: ETHINYL ESTRADIOL\ETONOGESTREL
     Indication: CONTRACEPTION
     Dosage: UNK
     Route: 067
  2. NUVARING [Suspect]
     Active Substance: ETHINYL ESTRADIOL\ETONOGESTREL
     Dosage: UNK, PLACE 1, REMOVE + REPLACE SAME DAY QM
     Route: 067
     Dates: start: 20110510, end: 20110806

REACTIONS (9)
  - Dyspnoea [Unknown]
  - Metabolic alkalosis [Unknown]
  - Mesenteric artery stent insertion [Unknown]
  - Acne [Unknown]
  - Arterectomy with graft replacement [Unknown]
  - Mesenteric vein thrombosis [Unknown]
  - Constipation [Recovered/Resolved]
  - Nasal congestion [Unknown]
  - Thrombosis [Unknown]

NARRATIVE: CASE EVENT DATE: 2002
